FAERS Safety Report 10164595 (Version 2)
Quarter: 2014Q2

REPORT INFORMATION
  Report Type: Spontaneous
  Country: US (occurrence: US)
  Receive Date: 20140510
  Receipt Date: 20140510
  Transmission Date: 20141212
  Serious: No
  Sender: FDA-Public Use
  Company Number: US-BRISTOL-MYERS SQUIBB COMPANY-19589548

PATIENT
  Age: 68 Year
  Sex: Male
  Weight: 83.9 kg

DRUGS (4)
  1. BYDUREON [Suspect]
     Indication: TYPE 1 DIABETES MELLITUS
     Dosage: 4TH INJECTION ON OCT13
     Route: 058
  2. METFORMIN HCL [Suspect]
  3. LANTUS [Suspect]
     Dosage: INITIAL DOSE 30 UNITS THEN INCREASED TO 34 UNITS
  4. HUMALOG [Suspect]

REACTIONS (4)
  - Blood glucose increased [Unknown]
  - Asthenia [Unknown]
  - Pain in extremity [Unknown]
  - Arthralgia [Unknown]
